FAERS Safety Report 5473913-X (Version None)
Quarter: 2007Q3

REPORT INFORMATION
  Report Type: 
  Country: None (occurrence: None)
  Receive Date: 20070831
  Receipt Date: 20070402
  Transmission Date: 20080115
  Serious: No
  Sender: FDA-Public Use
  Company Number: 236162

PATIENT
  Age: 78 Year
  Sex: Female
  Weight: 57.6 kg

DRUGS (6)
  1. LUCENTIS [Suspect]
     Indication: MACULAR DEGENERATION
     Dosage: INTRAVITREAL
     Dates: start: 20061030
  2. ACEON [Concomitant]
  3. COREG [Concomitant]
  4. OCULAR VITAMIN NOS (VITAMINS NOS) [Concomitant]
  5. CALCIUM (CALCIUM NOS) [Concomitant]
  6. OMEGA 3 (DOCOSAHEXANOIC ACID, EICOSAPENTAENOIC ACID) [Concomitant]

REACTIONS (1)
  - BLOOD PRESSURE INCREASED [None]
